FAERS Safety Report 7804545 (Version 8)
Quarter: 2012Q4

REPORT INFORMATION
  Report Type: 
  Country: JP (occurrence: JP)
  Receive Date: 20110208
  Receipt Date: 20120918
  Transmission Date: 20130627
  Serious: Yes (Hospitalization, Other)
  Sender: FDA-Public Use
  Company Number: PHHY2011JP06758

PATIENT
  Age: 61 Year
  Sex: Female

DRUGS (6)
  1. ZOMETA [Suspect]
     Indication: METASTASES TO BONE
     Dosage: 4 mg, Every month
     Route: 041
     Dates: start: 200608, end: 201003
  2. ZOMETA [Suspect]
     Dosage: UNK UKN, UNK
  3. AREDIA [Concomitant]
     Indication: METASTASES TO BONE
     Dosage: 90 mg
     Route: 042
     Dates: start: 200507, end: 200608
  4. INCADRONIC ACID [Concomitant]
     Dosage: 250 mg, UNK
     Route: 042
     Dates: start: 200504, end: 200507
  5. ENDOCRINE THERAPY [Concomitant]
  6. CHEMOTHERAPEUTICS [Concomitant]

REACTIONS (9)
  - Exostosis [Unknown]
  - Fall [Unknown]
  - Femur fracture [Recovering/Resolving]
  - Osteosclerosis [Unknown]
  - Bone pain [Unknown]
  - Tumour invasion [Unknown]
  - Bone disorder [Unknown]
  - Pathological fracture [Unknown]
  - Hypertrophy [Unknown]
